FAERS Safety Report 9521292 (Version 1)
Quarter: 2013Q3

REPORT INFORMATION
  Report Type: Spontaneous
  Country: SE (occurrence: SE)
  Receive Date: 20130913
  Receipt Date: 20130913
  Transmission Date: 20140515
  Serious: Yes (Other)
  Sender: FDA-Public Use
  Company Number: SE-JNJFOC-20130903347

PATIENT
  Sex: Female

DRUGS (2)
  1. SPORANOX [Suspect]
     Indication: FUNGAL INFECTION
     Route: 065
  2. SPORANOX [Suspect]
     Indication: FUNGAL INFECTION
     Route: 065

REACTIONS (2)
  - Heart rate decreased [Unknown]
  - Fungal infection [Unknown]
